FAERS Safety Report 18686678 (Version 1)
Quarter: 2020Q4

REPORT INFORMATION
  Report Type: Spontaneous
  Country: RO (occurrence: RO)
  Receive Date: 20201231
  Receipt Date: 20201231
  Transmission Date: 20210114
  Serious: Yes (Other)
  Sender: FDA-Public Use
  Company Number: RO-AMGEN-ROUSP2020199371

PATIENT
  Age: 71 Year
  Sex: Female
  Weight: 47 kg

DRUGS (3)
  1. PROLIA [Suspect]
     Active Substance: DENOSUMAB
     Indication: OSTEOPOROSIS
     Dosage: 60 MILLIGRAM, Q6MO
     Route: 042
     Dates: start: 201905
  2. CALCIUM [Concomitant]
     Active Substance: CALCIUM
     Indication: OSTEOPOROSIS
  3. ALPHA D3 [Concomitant]
     Active Substance: ALFACALCIDOL
     Indication: OSTEOPOROSIS

REACTIONS (3)
  - Tooth extraction [Unknown]
  - Incorrect route of product administration [Unknown]
  - Salivary gland neoplasm [Unknown]

NARRATIVE: CASE EVENT DATE: 201905
